FAERS Safety Report 8399336 (Version 3)
Quarter: 2013Q3

REPORT INFORMATION
  Report Type: Spontaneous
  Country: MX (occurrence: MX)
  Receive Date: 20120210
  Receipt Date: 20130705
  Transmission Date: 20140515
  Serious: Yes (Hospitalization, Disabling)
  Sender: FDA-Public Use
  Company Number: PHHY2012MX010677

PATIENT
  Age: 80 Year
  Sex: Female

DRUGS (8)
  1. ACLASTA [Suspect]
     Indication: OSTEOPOROSIS
     Dosage: 5 MG/ 100 ML ONCE A YEAR
     Route: 042
     Dates: start: 201002
  2. ACLASTA [Suspect]
     Dosage: 5 MG/ 100 ML ONCE A YEAR
     Route: 042
     Dates: start: 201105
  3. GLUCOSAMINE [Concomitant]
     Indication: ARTHRITIS
     Dosage: TWO CAPSULES EVERY 12 HRS
  4. HYZAAR [Concomitant]
     Indication: HYPERTENSION
  5. CALCIUM [Concomitant]
     Indication: OSTEOPOROSIS
  6. COD-LIVER OIL [Concomitant]
  7. GAVINDO [Concomitant]
     Indication: ARTHRITIS
  8. VITAMIN E [Concomitant]
     Dosage: 1 DF, 1 CAPSULE DAILY

REACTIONS (5)
  - Femur fracture [Unknown]
  - Hip fracture [Unknown]
  - Fall [Unknown]
  - Dysstasia [Unknown]
  - Gait disturbance [Unknown]
